FAERS Safety Report 16762824 (Version 1)
Quarter: 2019Q3

REPORT INFORMATION
  Report Type: Spontaneous
  Country: BY (occurrence: BY)
  Receive Date: 20190901
  Receipt Date: 20190901
  Transmission Date: 20191005
  Serious: Yes (Other)
  Sender: FDA-Public Use
  Company Number: BY-009507513-1908BLR007863

PATIENT
  Sex: Female

DRUGS (2)
  1. DIPROSPAN [Suspect]
     Active Substance: BETAMETHASONE DIPROPIONATE\BETAMETHASONE SODIUM PHOSPHATE
     Indication: EPICONDYLITIS
     Dosage: 1 MILLILITER, QD
     Route: 052
     Dates: start: 20190725, end: 20190725
  2. KETONAL [Concomitant]
     Active Substance: KETOPROFEN
     Indication: EPICONDYLITIS
     Dosage: 1 DOSAGE FORM, BID
     Dates: start: 20190724, end: 20190728

REACTIONS (3)
  - Erythema [Recovered/Resolved]
  - Rash generalised [Recovered/Resolved]
  - Dyspnoea [Recovered/Resolved]

NARRATIVE: CASE EVENT DATE: 20190726
